FAERS Safety Report 11875426 (Version 3)
Quarter: 2016Q1

REPORT INFORMATION
  Report Type: Spontaneous
  Country: JP (occurrence: JP)
  Receive Date: 20151229
  Receipt Date: 20160211
  Transmission Date: 20160526
  Serious: Yes (Hospitalization)
  Sender: FDA-Public Use
  Company Number: JP-009507513-1512JPN000349

PATIENT
  Age: 93 Year
  Sex: Female

DRUGS (5)
  1. ZETIA [Suspect]
     Active Substance: EZETIMIBE
     Indication: HYPERCHOLESTEROLAEMIA
     Dosage: 10 MG, QD
     Route: 048
     Dates: start: 20151016, end: 20151118
  2. CARVEDILOL. [Concomitant]
     Active Substance: CARVEDILOL
     Dosage: 10 MG, QD, DIVIDED DOSE FREQUENCY UNKNOWN
     Route: 048
  3. AMLODIPINE [Concomitant]
     Active Substance: AMLODIPINE BESYLATE
     Dosage: 5 MG, QD, DIVIDED DOSE FREQUENCY UNKNOWN
     Route: 048
  4. SAWACILLIN [Suspect]
     Active Substance: AMOXICILLIN
     Dosage: DAILY DOSE UNKNOWN
     Route: 048
     Dates: start: 20151116
  5. CALFINA [Concomitant]
     Active Substance: ALFACALCIDOL
     Dosage: 0.5 MICROGRAM, QD, DIVIDED DOSE FREQUENCY UNKNOWN
     Route: 048

REACTIONS (3)
  - Hypersensitivity [Unknown]
  - Generalised erythema [Unknown]
  - Rash generalised [Unknown]

NARRATIVE: CASE EVENT DATE: 20151118
